FAERS Safety Report 23332569 (Version 1)
Quarter: 2023Q4

REPORT INFORMATION
  Report Type: Spontaneous
  Country: DE (occurrence: DE)
  Receive Date: 20231222
  Receipt Date: 20231222
  Transmission Date: 20240109
  Serious: Yes (Death)
  Sender: FDA-Public Use
  Company Number: DE-MEDAC-2023002130

PATIENT
  Age: 69 Year
  Sex: Female

DRUGS (8)
  1. OXALIPLATIN [Suspect]
     Active Substance: OXALIPLATIN
     Indication: Metastases to peritoneum
     Dosage: 149.85 MILLIGRAM, TOTAL (85 MG/M2)
     Route: 042
  2. OXALIPLATIN [Suspect]
     Active Substance: OXALIPLATIN
     Indication: Gastric cancer
  3. FLUOROURACIL [Suspect]
     Active Substance: FLUOROURACIL
     Indication: Gastric cancer
     Dosage: 3052 MILLIGRAM, TOTAL
     Route: 065
  4. FLUOROURACIL [Suspect]
     Active Substance: FLUOROURACIL
     Indication: Metastases to peritoneum
  5. LEUCOVORIN CALCIUM [Suspect]
     Active Substance: LEUCOVORIN CALCIUM
     Indication: Gastric cancer
     Dosage: SHOULD HAVE RECEIVED 355.95 MG (200 MG/M2) OVER 30 MIN. DUE TO CONFUSION WITH 5-FU NOT ADMINISTERED
     Route: 065
  6. LEUCOVORIN CALCIUM [Suspect]
     Active Substance: LEUCOVORIN CALCIUM
     Indication: Metastases to peritoneum
  7. NIVOLUMAB [Concomitant]
     Active Substance: NIVOLUMAB
     Indication: Metastases to peritoneum
     Dosage: 240 MILLIGRAM, TOTAL
     Route: 042
  8. NIVOLUMAB [Concomitant]
     Active Substance: NIVOLUMAB
     Indication: Gastric cancer

REACTIONS (3)
  - Pancytopenia [Fatal]
  - Sepsis [Fatal]
  - Incorrect drug administration rate [Fatal]
